FAERS Safety Report 6710487-7 (Version None)
Quarter: 2010Q2

REPORT INFORMATION
  Report Type: 
  Country: None (occurrence: None)
  Receive Date: 20100504
  Receipt Date: 20100108
  Transmission Date: 20101027
  Serious: Yes (Hospitalization)
  Sender: FDA-Public Use
  Company Number: SE-ABBOTT-10P-150-0641988-00

PATIENT
  Age: 84 Year
  Sex: Male

DRUGS (10)
  1. CLARITHROMYCIN [Suspect]
     Indication: GASTRITIS
     Dates: start: 20091103, end: 20091113
  2. AMOXICILLIN [Suspect]
     Indication: GASTRITIS
     Dates: start: 20091103, end: 20091113
  3. ESOMEPRAZOLE MAGNESIUM [Suspect]
     Indication: GASTRITIS
     Dates: start: 20091103, end: 20091113
  4. CETIRIZINE HCL [Concomitant]
     Indication: DRUG USE FOR UNKNOWN INDICATION
  5. PAMOL [Concomitant]
     Indication: DRUG USE FOR UNKNOWN INDICATION
  6. ATROVENT [Concomitant]
     Indication: DRUG USE FOR UNKNOWN INDICATION
     Dosage: PRESSURISED INHALATION, SOLUTION
  7. ATARAX [Concomitant]
     Indication: DRUG USE FOR UNKNOWN INDICATION
  8. ALFUZOSIN HCL [Concomitant]
     Indication: DRUG USE FOR UNKNOWN INDICATION
  9. FURIX [Concomitant]
     Indication: DRUG USE FOR UNKNOWN INDICATION
  10. CILAXORAL [Concomitant]
     Indication: DRUG USE FOR UNKNOWN INDICATION
     Dosage: SOLUTION: 7.5MG/ML
     Route: 048

REACTIONS (3)
  - ANGIOEDEMA [None]
  - PYREXIA [None]
  - URTICARIA [None]
